FAERS Safety Report 21992696 (Version 2)
Quarter: 2023Q1

REPORT INFORMATION
  Report Type: Report from Study
  Country: US (occurrence: US)
  Receive Date: 20230215
  Receipt Date: 20230227
  Transmission Date: 20230418
  Serious: Yes (Hospitalization)
  Sender: FDA-Public Use
  Company Number: US-ABBVIE-4307091

PATIENT
  Age: 89 Year
  Sex: Female

DRUGS (2)
  1. VENCLEXTA [Suspect]
     Active Substance: VENETOCLAX
     Indication: Chronic lymphocytic leukaemia
     Dosage: LAST ADMINISTRATION FEB 2023
     Route: 048
     Dates: start: 20230202
  2. VENCLEXTA [Suspect]
     Active Substance: VENETOCLAX
     Indication: Chronic lymphocytic leukaemia
     Dosage: LAST ADMINISTRATION FEB 2023
     Route: 048
     Dates: start: 202301, end: 202302

REACTIONS (3)
  - Haemoglobin abnormal [Unknown]
  - Dyspnoea [Unknown]
  - Hospice care [Unknown]

NARRATIVE: CASE EVENT DATE: 20230201
